FAERS Safety Report 6427446-4 (Version None)
Quarter: 2009Q4

REPORT INFORMATION
  Report Type: 
  Country: None (occurrence: None)
  Receive Date: 20091030
  Receipt Date: 20091020
  Transmission Date: 20100525
  Serious: Yes (Hospitalization)
  Sender: FDA-Public Use
  Company Number: 2009SP031862

PATIENT
  Age: 43 Year
  Sex: Female

DRUGS (2)
  1. PEG-INTRON [Suspect]
     Indication: HEPATITIS C
     Dosage: SC
     Route: 058
     Dates: start: 20090515
  2. REBETOL [Suspect]
     Indication: HEPATITIS C
     Dosage: PO
     Route: 048
     Dates: start: 20090515

REACTIONS (5)
  - ASTHMA [None]
  - IMMUNE SYSTEM DISORDER [None]
  - SWOLLEN TONGUE [None]
  - TONGUE DISCOLOURATION [None]
  - WHITE BLOOD CELL COUNT DECREASED [None]
